FAERS Safety Report 5084885-4 (Version None)
Quarter: 2006Q3

REPORT INFORMATION
  Report Type: 
  Country: None (occurrence: None)
  Receive Date: 20060821
  Receipt Date: 20060808
  Transmission Date: 20061208
  Serious: Yes (Other)
  Sender: FDA-Public Use
  Company Number: AU-NOVOPROD-256094

PATIENT
  Age: 67 Year
  Sex: Female
  Weight: 72 kg

DRUGS (9)
  1. NOVOSEVEN [Suspect]
     Indication: OPERATIVE HAEMORRHAGE
     Dosage: 8.4 MG, SINGLE
     Dates: start: 20050810
  2. TRASYLOL [Concomitant]
     Dosage: BEFORE RFVIIA DOSE
  3. PROTAMINE SULFATE [Concomitant]
     Dosage: BEFORE RFVIIA DOSE
  4. HEPARIN [Concomitant]
     Dosage: BEFORE RFVIIA DOSE
  5. BLOOD CELLS, PACKED HUMAN [Concomitant]
     Dosage: 7 U, 24 HRS PRE RFVIIA ADMINISTRATION
  6. FRESH FROZEN PLASMA [Concomitant]
     Dosage: 8 U, 24 HRS PRE RFVIIA ADMINISTRATION
  7. CRYOPRECIPITATES [Concomitant]
     Dosage: 10 U, 24 HRS POST RFVIIA ADMINISTRATION
  8. PLATELETS [Concomitant]
     Dosage: 2 U, 24 HRS PRE RFVIIA ADMINISTRATION
  9. GELOFUSINE                         /00203801/ [Concomitant]
     Dosage: 1000 ML, 24 HRS POST RFVIIA ADMINISTRATION

REACTIONS (1)
  - SUBCLAVIAN VEIN THROMBOSIS [None]
